FAERS Safety Report 9530960 (Version 1)
Quarter: 2013Q2

REPORT INFORMATION
  Report Type: Spontaneous
  Country: US (occurrence: None)
  Receive Date: 20130402
  Receipt Date: 20130402
  Transmission Date: 20140414
  Serious: Yes (Other)
  Sender: FDA-Public Use
  Company Number: RB-46781-2012

PATIENT
  Age: 27 Year
  Sex: Male

DRUGS (2)
  1. SUBOXONE 8 MG [Suspect]
     Indication: DRUG DEPENDENCE
     Dosage: SUBOXONE FILM; 4 TO 8 MG DAILY SUBLINGUAL
     Dates: start: 2010
  2. SUBOXONE 8 MG [Suspect]
     Indication: DRUG DEPENDENCE
     Dosage: 4 TO 8 MG DAILY SUBLINGUAL
     Dates: start: 2010, end: 2010

REACTIONS (8)
  - Feeling abnormal [None]
  - Oesophageal discomfort [None]
  - Gastrooesophageal reflux disease [None]
  - Stomatitis [None]
  - Product taste abnormal [None]
  - Substance abuse [None]
  - Dizziness [None]
  - Nausea [None]
